FAERS Safety Report 23267395 (Version 1)
Quarter: 2023Q4

REPORT INFORMATION
  Report Type: Spontaneous
  Country: US (occurrence: None)
  Receive Date: 20231205
  Receipt Date: 20231205
  Transmission Date: 20240109
  Serious: Yes (Other)
  Sender: FDA-Public Use
  Company Number: None

PATIENT
  Age: 61 Year
  Sex: Female
  Weight: 76.05 kg

DRUGS (15)
  1. SPRAVATO [Suspect]
     Active Substance: ESKETAMINE
     Indication: Depression
     Dosage: FREQUENCY : ONCE;?
     Route: 045
     Dates: start: 20231101, end: 20231101
  2. LIPITOR [Concomitant]
     Active Substance: ATORVASTATIN CALCIUM
  3. TOPAMAX [Concomitant]
     Active Substance: TOPIRAMATE
  4. AMITIZA [Concomitant]
     Active Substance: LUBIPROSTONE
  5. PRISTIQ EXTENDED-RELEASE [Concomitant]
     Active Substance: DESVENLAFAXINE SUCCINATE
  6. ACTEMRA [Concomitant]
     Active Substance: TOCILIZUMAB
  7. FENTANYL TRANSDERMAL SYSTEM [Concomitant]
     Active Substance: FENTANYL
  8. NUVIGIL [Concomitant]
     Active Substance: ARMODAFINIL
  9. PROTONIX [Concomitant]
     Active Substance: PANTOPRAZOLE SODIUM
  10. Vasepa [Concomitant]
  11. AJOVY [Concomitant]
     Active Substance: FREMANEZUMAB-VFRM
  12. BOTOX [Concomitant]
     Active Substance: ONABOTULINUMTOXINA
  13. NORTRIPTYLINE [Concomitant]
     Active Substance: NORTRIPTYLINE
  14. Beta-Histine [Concomitant]
  15. DEVICE [Concomitant]
     Active Substance: DEVICE

REACTIONS (5)
  - Dizziness [None]
  - Vertigo [None]
  - Balance disorder [None]
  - Euphoric mood [None]
  - Diplopia [None]

NARRATIVE: CASE EVENT DATE: 20231101
